FAERS Safety Report 17562252 (Version 5)
Quarter: 2022Q1

REPORT INFORMATION
  Report Type: Spontaneous
  Country: JP (occurrence: None)
  Receive Date: 20200319
  Receipt Date: 20220210
  Transmission Date: 20220423
  Serious: Yes (Hospitalization, Other)
  Sender: FDA-Public Use
  Company Number: 2020SE37311

PATIENT
  Age: 71 Year
  Sex: Female
  Weight: 48 kg

DRUGS (18)
  1. ROXADUSTAT [Suspect]
     Active Substance: ROXADUSTAT
     Indication: Nephrogenic anaemia
     Dosage: 100 MG, THRICE WEEKLY, ON TUESDAY, THURSDAY AND SATURDAY;
     Route: 048
     Dates: start: 20200220
  2. CRESTOR [Suspect]
     Active Substance: ROSUVASTATIN CALCIUM
     Indication: Dyslipidaemia
     Route: 048
     Dates: start: 20190606, end: 20200220
  3. FAMOTIDINE [Concomitant]
     Active Substance: FAMOTIDINE
     Indication: Chronic gastritis
     Route: 048
  4. AMLODIPINE [Concomitant]
     Active Substance: AMLODIPINE BESYLATE
     Indication: Hypertension
     Route: 048
  5. OLMESARTAN MEDOXOMIL [Concomitant]
     Active Substance: OLMESARTAN MEDOXOMIL
     Indication: Hypertension
     Route: 048
  6. REMITCH OD [Concomitant]
     Indication: Pruritus
     Route: 048
  7. OLOPATADINE HYDROCHLORIDE [Concomitant]
     Active Substance: OLOPATADINE HYDROCHLORIDE
     Indication: Pruritus
     Route: 048
  8. AMEZINIUM METILSULFATE [Concomitant]
     Active Substance: AMEZINIUM METILSULFATE
     Indication: Blood pressure decreased
     Route: 048
  9. OLOPATADINE HYDROCHLORIDE [Concomitant]
     Active Substance: OLOPATADINE HYDROCHLORIDE
  10. DARBEPOETIN ALFA [Concomitant]
     Active Substance: DARBEPOETIN ALFA
     Indication: Product used for unknown indication
  11. LEVOCARNITINE HYDROCHLORIDE [Concomitant]
     Active Substance: LEVOCARNITINE HYDROCHLORIDE
     Indication: Carnitine deficiency
     Route: 042
     Dates: start: 20181015, end: 20200220
  12. TENELIGLIPTIN [Concomitant]
     Active Substance: TENELIGLIPTIN
     Indication: Type 2 diabetes mellitus
     Route: 048
     Dates: start: 20190108
  13. BIFIDOBACTERIUM SPP. [Concomitant]
     Active Substance: BIFIDOBACTERIUM SPP.
     Indication: Dysbiosis
     Route: 048
     Dates: start: 20190207
  14. FOLIC ACID [Concomitant]
     Active Substance: FOLIC ACID
     Indication: Folate deficiency
     Route: 048
     Dates: start: 20190718, end: 20200220
  15. HISHIPHAGEN C [Concomitant]
     Indication: Pruritus
     Route: 042
     Dates: start: 20190919
  16. MAXACALCITOL [Concomitant]
     Active Substance: MAXACALCITOL
     Indication: Secondary hypothyroidism
     Route: 042
     Dates: start: 20191031
  17. FESIN [Concomitant]
     Indication: Product used for unknown indication
     Dates: start: 20200211
  18. LINZESS [Concomitant]
     Active Substance: LINACLOTIDE
     Indication: Constipation
     Dosage: 0.5 MG, ONCE DAILY
     Route: 048
     Dates: start: 20180917

REACTIONS (6)
  - Hypoxia [Recovered/Resolved]
  - Muscular weakness [Recovered/Resolved]
  - Muscular weakness [Recovered/Resolved]
  - Pleural effusion [Recovered/Resolved]
  - Blood potassium decreased [Recovering/Resolving]
  - Blood bilirubin increased [Recovering/Resolving]

NARRATIVE: CASE EVENT DATE: 20200301
